FAERS Safety Report 24429551 (Version 1)
Quarter: 2024Q4

REPORT INFORMATION
  Report Type: Spontaneous
  Country: CN (occurrence: CN)
  Receive Date: 20241012
  Receipt Date: 20241012
  Transmission Date: 20250115
  Serious: Yes (Other)
  Sender: JIANGSU HENGRUI MEDICINE
  Company Number: CN-Jiangsu Hengrui Medicine Co., Ltd.-2162912

PATIENT
  Age: 61 Year
  Sex: Male
  Weight: 51.7 kg

DRUGS (4)
  1. CYCLOPHOSPHAMIDE [Suspect]
     Active Substance: CYCLOPHOSPHAMIDE
     Indication: Diffuse large B-cell lymphoma
     Dates: start: 20240906, end: 20240906
  2. EPIRUBICIN HYDROCHLORIDE [Suspect]
     Active Substance: EPIRUBICIN HYDROCHLORIDE
     Dates: start: 20240906, end: 20240906
  3. SODIUM CHLORIDE [Concomitant]
     Active Substance: SODIUM CHLORIDE
     Dates: start: 20240906, end: 20240906
  4. VINCRISTINE SULFATE [Suspect]
     Active Substance: VINCRISTINE SULFATE
     Dates: start: 20240906, end: 20240906

REACTIONS (3)
  - White blood cell count decreased [Recovering/Resolving]
  - Vomiting [Recovering/Resolving]
  - Hiccups [Recovering/Resolving]

NARRATIVE: CASE EVENT DATE: 20240906
